FAERS Safety Report 8243552-6 (Version None)
Quarter: 2012Q1

REPORT INFORMATION
  Report Type: 
  Country: None (occurrence: None)
  Receive Date: 20120329
  Receipt Date: 20120326
  Transmission Date: 20120608
  Serious: Yes (Hospitalization, Other)
  Sender: FDA-Public Use
  Company Number: PHHY2012DE018257

PATIENT
  Sex: Female
  Weight: 52 kg

DRUGS (4)
  1. MIRTAZAPINE [Suspect]
  2. GILENYA [Suspect]
     Indication: MULTIPLE SCLEROSIS
     Dosage: 0.5 MG, QD
     Route: 048
     Dates: start: 20111020
  3. DIAZEPAM [Suspect]
  4. ESOMEPRAZOLE [Concomitant]
     Indication: ABDOMINAL DISCOMFORT
     Dosage: 20 MG, PRN

REACTIONS (1)
  - SUICIDE ATTEMPT [None]
